FAERS Safety Report 5194146-0 (Version None)
Quarter: 2006Q4

REPORT INFORMATION
  Report Type: 
  Country: None (occurrence: None)
  Receive Date: 20061228
  Receipt Date: 20061219
  Transmission Date: 20070319
  Serious: Yes (Hospitalization)
  Sender: FDA-Public Use
  Company Number: FR-SANOFI-SYNTHELABO-F02200600017

PATIENT
  Sex: Female
  Weight: 64 kg

DRUGS (5)
  1. PLACEBO [Suspect]
     Indication: PROPHYLAXIS
     Dosage: 125 ML OF GLUCOSE SOL 5%
     Route: 042
     Dates: start: 20061115, end: 20061115
  2. CA+MG [Suspect]
     Dosage: CALCIUM GLUCONATE 1G+ MAGNESIUM CHLORURE 1G IN 125 ML OF GLUCOSE SOL 5%
     Route: 042
     Dates: start: 20061115, end: 20061115
  3. FLUOROURACIL [Suspect]
     Indication: COLON CANCER METASTATIC
     Route: 040
     Dates: start: 20061130, end: 20061130
  4. FLUOROURACIL [Suspect]
     Route: 041
     Dates: start: 20061115, end: 20061115
  5. ELOXATIN [Suspect]
     Indication: COLON CANCER METASTATIC
     Route: 042
     Dates: start: 20061115, end: 20061115

REACTIONS (4)
  - ASTHENIA [None]
  - CHEST PAIN [None]
  - DYSPNOEA [None]
  - GENERAL PHYSICAL HEALTH DETERIORATION [None]
